FAERS Safety Report 8622593-0 (Version None)
Quarter: 2012Q3

REPORT INFORMATION
  Report Type: 
  Country: None (occurrence: None)
  Receive Date: 20120810
  Receipt Date: 20120725
  Transmission Date: 20120928
  Serious: Yes (Hospitalization, Other)
  Sender: FDA-Public Use
  Company Number: 2012MA009296

PATIENT
  Age: 23 Year
  Sex: Female

DRUGS (1)
  1. FEVERALL [Suspect]
     Dosage: 200 G X1; PO
     Route: 048

REACTIONS (13)
  - HYPOTENSION [None]
  - MENTAL STATUS CHANGES [None]
  - DEPRESSED LEVEL OF CONSCIOUSNESS [None]
  - NYSTAGMUS [None]
  - METABOLIC ACIDOSIS [None]
  - GASTROINTESTINAL SOUNDS ABNORMAL [None]
  - ALANINE AMINOTRANSFERASE INCREASED [None]
  - UNRESPONSIVE TO STIMULI [None]
  - ASPARTATE AMINOTRANSFERASE INCREASED [None]
  - CONTINUOUS HAEMODIAFILTRATION [None]
  - COMA [None]
  - CONFUSIONAL STATE [None]
  - INTERNATIONAL NORMALISED RATIO INCREASED [None]
